FAERS Safety Report 6688321-3 (Version None)
Quarter: 2010Q2

REPORT INFORMATION
  Report Type: 
  Country: None (occurrence: None)
  Receive Date: 20100420
  Receipt Date: 20100414
  Transmission Date: 20101027
  Serious: Yes (Other)
  Sender: FDA-Public Use
  Company Number: JP-BAYER-201011876BYL

PATIENT
  Age: 62 Year
  Sex: Female

DRUGS (2)
  1. AVELOX [Suspect]
     Indication: UPPER RESPIRATORY TRACT INFECTION
     Dosage: UNIT DOSE: 400 MG
     Route: 048
     Dates: start: 20100406
  2. RIKOKODE [Suspect]
     Indication: DRUG USE FOR UNKNOWN INDICATION
     Route: 065

REACTIONS (5)
  - DEAFNESS [None]
  - HEPATITIS [None]
  - HYPERHIDROSIS [None]
  - HYPOAESTHESIA [None]
  - PALLOR [None]
